FAERS Safety Report 5990472-3 (Version None)
Quarter: 2008Q4

REPORT INFORMATION
  Report Type: 
  Country: None (occurrence: None)
  Receive Date: 20081211
  Receipt Date: 20081204
  Transmission Date: 20090506
  Serious: Yes (Hospitalization, Other)
  Sender: FDA-Public Use
  Company Number: US-BRISTOL-MYERS SQUIBB COMPANY-13681929

PATIENT
  Age: 64 Year
  Sex: Female
  Weight: 69 kg

DRUGS (21)
  1. CETUXIMAB [Suspect]
     Indication: NON-SMALL CELL LUNG CANCER
     Route: 042
     Dates: start: 20070208, end: 20070208
  2. CARBOPLATIN [Suspect]
     Indication: NON-SMALL CELL LUNG CANCER
     Route: 042
     Dates: start: 20070209, end: 20070209
  3. AVASTIN [Suspect]
     Indication: NON-SMALL CELL LUNG CANCER
     Route: 042
     Dates: start: 20070209, end: 20070209
  4. TAXOTERE [Suspect]
     Indication: NON-SMALL CELL LUNG CANCER
     Dates: start: 20080209
  5. COMPAZINE [Suspect]
     Indication: NAUSEA
  6. HYDRODIURIL [Suspect]
  7. MEGACE [Concomitant]
     Indication: INCREASED APPETITE
     Dates: start: 20070202
  8. PERCOCET [Concomitant]
     Indication: PAIN
     Dates: start: 20070122
  9. TESSALON [Concomitant]
     Indication: COUGH
     Dates: start: 20070202
  10. DULCOLAX [Concomitant]
     Indication: CONSTIPATION
     Dates: start: 20060101
  11. BENEFIBER [Concomitant]
     Indication: CONSTIPATION
     Dates: start: 20030101
  12. ZOCOR [Concomitant]
     Indication: HYPERLIPIDAEMIA
     Dates: start: 20010101
  13. ATENOLOL [Concomitant]
     Indication: HYPERTENSION
     Dates: start: 20040101
  14. DIOVAN HCT [Concomitant]
     Indication: HYPERTENSION
     Dosage: 1 DOSAGE FORM = 80/12.5MG
     Dates: start: 20061001
  15. TYLENOL (CAPLET) [Concomitant]
     Indication: PAIN
     Dates: start: 20070101
  16. PROMETHAZINE [Concomitant]
     Indication: NAUSEA
     Dates: start: 20070122
  17. PROMETHAZINE [Concomitant]
     Indication: COUGH
     Dates: start: 20070122
  18. ASPIRIN [Concomitant]
     Indication: CARDIOVASCULAR EVENT PROPHYLAXIS
     Dates: start: 20030101
  19. CALCIUM [Concomitant]
     Indication: OSTEOPENIA
     Dates: start: 20010101
  20. MULTI-VITAMINS [Concomitant]
     Indication: VITAMIN SUPPLEMENTATION
     Dates: start: 20010101
  21. POTASSIUM CHLORIDE [Concomitant]
     Indication: MINERAL SUPPLEMENTATION
     Dates: start: 20030101

REACTIONS (2)
  - HYPERSENSITIVITY [None]
  - ODYNOPHAGIA [None]
